FAERS Safety Report 17635515 (Version 1)
Quarter: 2020Q2

REPORT INFORMATION
  Report Type: Spontaneous
  Country: US (occurrence: US)
  Receive Date: 20200407
  Receipt Date: 20200407
  Transmission Date: 20200713
  Serious: No
  Sender: FDA-Public Use
  Company Number: US-TEVA-2020-US-1218558

PATIENT
  Sex: Female

DRUGS (1)
  1. NORTREL [Suspect]
     Active Substance: ETHINYL ESTRADIOL\NORETHINDRONE
     Dosage: STRENGTH: 1MG/0.035 MG

REACTIONS (3)
  - Expired product administered [Unknown]
  - Menstrual disorder [Unknown]
  - Headache [Unknown]
